FAERS Safety Report 12821820 (Version 1)
Quarter: 2016Q4

REPORT INFORMATION
  Report Type: Spontaneous
  Country: CN (occurrence: CN)
  Receive Date: 20161007
  Receipt Date: 20161007
  Transmission Date: 20170207
  Serious: Yes (Other)
  Sender: FDA-Public Use
  Company Number: CN-BAXTER-2016BAX050013

PATIENT
  Age: 68 Year
  Sex: Male

DRUGS (2)
  1. 20% MANNITOL INJECTION [Suspect]
     Active Substance: MANNITOL
     Indication: SUBDURAL HAEMORRHAGE
     Route: 041
     Dates: start: 20160228
  2. 20% MANNITOL INJECTION [Suspect]
     Active Substance: MANNITOL
     Dosage: DOSE REDUCED
     Route: 041
     Dates: end: 20160304

REACTIONS (3)
  - Stress [Unknown]
  - Renal impairment [Recovered/Resolved]
  - Post procedural complication [Unknown]

NARRATIVE: CASE EVENT DATE: 20160228
